FAERS Safety Report 13085111 (Version 1)
Quarter: 2017Q1

REPORT INFORMATION
  Report Type: Spontaneous
  Country: US (occurrence: US)
  Receive Date: 20170104
  Receipt Date: 20170104
  Transmission Date: 20170428
  Serious: No
  Sender: FDA-Public Use
  Company Number: None

PATIENT
  Age: 28 Year
  Sex: Female

DRUGS (1)
  1. HUMIRA [Suspect]
     Active Substance: ADALIMUMAB
     Indication: PSORIASIS
     Route: 058
     Dates: start: 20161006

REACTIONS (4)
  - Drug dose omission [None]
  - Psoriasis [None]
  - Malaise [None]
  - Nasopharyngitis [None]

NARRATIVE: CASE EVENT DATE: 20161125
